APPROVED DRUG PRODUCT: SULFACETAMIDE SODIUM
Active Ingredient: SULFACETAMIDE SODIUM
Strength: 10%
Dosage Form/Route: OINTMENT;OPHTHALMIC
Application: A080029 | Product #001
Applicant: PADAGIS US LLC
Approved: Approved Prior to Jan 1, 1982 | RLD: No | RS: Yes | Type: RX